FAERS Safety Report 6010901-9 (Version None)
Quarter: 2008Q4

REPORT INFORMATION
  Report Type: 
  Country: None (occurrence: None)
  Receive Date: 20081218
  Receipt Date: 20081209
  Transmission Date: 20090506
  Serious: Yes (Hospitalization)
  Sender: FDA-Public Use
  Company Number: DE-ABBOTT-08P-062-0491816-00

PATIENT
  Sex: Female
  Weight: 68 kg

DRUGS (8)
  1. HUMIRA [Suspect]
     Indication: RHEUMATOID ARTHRITIS
     Route: 058
     Dates: start: 20061201, end: 20080701
  2. CERTOPARIN (MONO-EMBOLEX) [Concomitant]
     Indication: THROMBOSIS PROPHYLAXIS
  3. PANTOPRAZOL (PANTOZOL) [Concomitant]
     Indication: DRUG USE FOR UNKNOWN INDICATION
     Route: 048
  4. VOLTAREN [Concomitant]
     Indication: DRUG USE FOR UNKNOWN INDICATION
     Route: 048
  5. SERRAPEPTASE (ANIFLAZYM) [Concomitant]
     Indication: DRUG USE FOR UNKNOWN INDICATION
     Route: 048
  6. METHOTREXATE [Concomitant]
     Indication: RHEUMATOID ARTHRITIS
     Dosage: 10 MG/WEEK
  7. NSAID'S [Concomitant]
     Indication: RHEUMATOID ARTHRITIS
  8. GLUCOCORTICOSTEROIDS [Concomitant]
     Indication: RHEUMATOID ARTHRITIS
     Dosage: 5 MG/DAY

REACTIONS (1)
  - FOOT DEFORMITY [None]
